FAERS Safety Report 7095491-4 (Version None)
Quarter: 2010Q4

REPORT INFORMATION
  Report Type: 
  Country: None (occurrence: None)
  Receive Date: 20101111
  Receipt Date: 20101101
  Transmission Date: 20110411
  Serious: Yes (Life-Threatening, Other)
  Sender: FDA-Public Use
  Company Number: GB-ELI_LILLY_AND_COMPANY-GB201008002601

PATIENT
  Sex: Male
  Weight: 81 kg

DRUGS (9)
  1. ZYPREXA [Suspect]
     Indication: DEPRESSION
     Dosage: 10 MG, UNK
     Route: 048
     Dates: start: 20090301, end: 20090518
  2. ZYPREXA [Suspect]
     Dosage: 5 MG, UNK
     Route: 048
     Dates: start: 20090519, end: 20100410
  3. DULOXETINE [Concomitant]
     Dosage: 6 MG, DAILY (1/D)
  4. VALSARTAN [Concomitant]
     Dosage: 120 MG, DAILY (1/D)
  5. FENOFIBRATE [Concomitant]
     Dosage: 160 MG, UNK
  6. WARFARIN [Concomitant]
  7. DOLOXANE [Concomitant]
  8. EICOSAPENTAENOIC ACID [Concomitant]
  9. DOCOSAHEXANOIC ACID [Concomitant]

REACTIONS (1)
  - PULMONARY EMBOLISM [None]
